FAERS Safety Report 24135329 (Version 5)
Quarter: 2025Q3

REPORT INFORMATION
  Report Type: Report from Study
  Country: US (occurrence: US)
  Receive Date: 20240725
  Receipt Date: 20250914
  Transmission Date: 20251020
  Serious: Yes (Other)
  Sender: UCB
  Company Number: US-UCBSA-2024037350

PATIENT
  Age: 21 Year
  Sex: Female
  Weight: 45 kg

DRUGS (2)
  1. FINTEPLA [Suspect]
     Active Substance: FENFLURAMINE
     Indication: Lennox-Gastaut syndrome
     Dosage: 26.4 MILLIGRAM, ONCE DAILY (QD)
     Dates: start: 202204
  2. FINTEPLA [Suspect]
     Active Substance: FENFLURAMINE
     Indication: Seizure

REACTIONS (5)
  - Pulmonary valve incompetence [Unknown]
  - Mitral valve incompetence [Unknown]
  - Tricuspid valve incompetence [Not Recovered/Not Resolved]
  - Endocarditis [Not Recovered/Not Resolved]
  - Aortic valve thickening [Not Recovered/Not Resolved]

NARRATIVE: CASE EVENT DATE: 20240716
